FAERS Safety Report 5426110-8 (Version None)
Quarter: 2007Q3

REPORT INFORMATION
  Report Type: 
  Country: None (occurrence: None)
  Receive Date: 20070823
  Receipt Date: 20070810
  Transmission Date: 20080115
  Serious: Yes (Life-Threatening, Hospitalization)
  Sender: FDA-Public Use
  Company Number: 2007EN000189

PATIENT
  Age: 35 Year
  Sex: Male

DRUGS (9)
  1. OPANA ER [Suspect]
     Indication: NEURALGIA
     Dosage: 10 MG;Q12H ; 20 MG;Q12H
     Dates: start: 20070530, end: 20070612
  2. OPANA ER [Suspect]
     Indication: PAIN
     Dosage: 10 MG;Q12H ; 20 MG;Q12H
     Dates: start: 20070530, end: 20070612
  3. OPANA ER [Suspect]
     Indication: NEURALGIA
     Dosage: 10 MG;Q12H ; 20 MG;Q12H
     Dates: start: 20070613
  4. OPANA ER [Suspect]
     Indication: PAIN
     Dosage: 10 MG;Q12H ; 20 MG;Q12H
     Dates: start: 20070613
  5. REMERON [Concomitant]
  6. ULTRAM [Concomitant]
  7. SKELAXIN [Concomitant]
  8. CYMBALTA [Concomitant]
  9. KLONOPIN [Concomitant]

REACTIONS (5)
  - BACK PAIN [None]
  - BLOOD CREATINE INCREASED [None]
  - BLOOD POTASSIUM INCREASED [None]
  - DIARRHOEA [None]
  - HEPATIC FAILURE [None]
